FAERS Safety Report 4881386-0 (Version None)
Quarter: 2006Q1

REPORT INFORMATION
  Report Type: 
  Country: None (occurrence: None)
  Receive Date: 20060111
  Receipt Date: 20060111
  Transmission Date: 20060701
  Serious: Yes (Disabling)
  Sender: FDA-Public Use
  Company Number: None

PATIENT
  Age: 64 Year
  Sex: Female
  Weight: 56.6996 kg

DRUGS (2)
  1. LEVAQUIN [Suspect]
     Dosage: 1-05 500 MG 10 DAYS
     Dates: start: 20050201, end: 20050601
  2. LEVAQUIN [Suspect]
     Dosage: 11-05  500 MG 7 DAY
     Dates: start: 20051201

REACTIONS (1)
  - PERIARTHRITIS [None]
